FAERS Safety Report 10049706 (Version 5)
Quarter: 2015Q1

REPORT INFORMATION
  Report Type: Spontaneous
  Country: GB (occurrence: None)
  Receive Date: 20140328
  Receipt Date: 20150330
  Transmission Date: 20150720
  Serious: Yes (Life-Threatening, Hospitalization)
  Sender: FDA-Public Use
  Company Number: 2014MPI00255

PATIENT
  Age: 40 Year
  Sex: Female

DRUGS (1)
  1. ADCETRIS [Suspect]
     Active Substance: BRENTUXIMAB VEDOTIN
     Indication: HODGKIN^S DISEASE
     Dosage: 100 UNK, UNK{ INTRAVENOUS
     Route: 042
     Dates: start: 20131021, end: 20140501

REACTIONS (7)
  - Aspergillus infection [None]
  - Epstein-Barr virus test positive [None]
  - Hypotension [None]
  - General physical health deterioration [None]
  - Neutropenia [None]
  - Lung infection [None]
  - Respiratory failure [None]

NARRATIVE: CASE EVENT DATE: 20140221
